FAERS Safety Report 4678658-1 (Version None)
Quarter: 2005Q2

REPORT INFORMATION
  Report Type: 
  Country: None (occurrence: None)
  Receive Date: 20050527
  Receipt Date: 20050516
  Transmission Date: 20051028
  Serious: Yes (Other)
  Sender: FDA-Public Use
  Company Number: S05-USA-02182-01

PATIENT
  Age: 80 Year
  Sex: Male

DRUGS (12)
  1. NAMENDA [Suspect]
     Indication: DEMENTIA
     Dosage: 10 MG BID PO
     Route: 048
     Dates: start: 20040101
  2. NAMENDA [Suspect]
     Indication: HEAD INJURY
     Dosage: 10 MG BID PO
     Route: 048
     Dates: start: 20040101
  3. NAMENDA [Suspect]
     Indication: DEMENTIA
     Dosage: 5 MG QD PO
     Route: 048
     Dates: start: 20040401, end: 20040101
  4. NAMENDA [Suspect]
     Indication: HEAD INJURY
     Dosage: 5 MG QD PO
     Route: 048
     Dates: start: 20040401, end: 20040101
  5. NAMENDA [Suspect]
     Indication: DEMENTIA
     Dosage: 5 MG BID PO
     Route: 048
     Dates: start: 20040101, end: 20040101
  6. NAMENDA [Suspect]
     Indication: HEAD INJURY
     Dosage: 5 MG BID PO
     Route: 048
     Dates: start: 20040101, end: 20040101
  7. NAMENDA [Suspect]
     Indication: DEMENTIA
     Dosage: 15 MG QD PO
     Route: 048
     Dates: start: 20040101, end: 20040101
  8. NAMENDA [Suspect]
     Indication: HEAD INJURY
     Dosage: 15 MG QD PO
     Route: 048
     Dates: start: 20040101, end: 20040101
  9. LEVODOPA [Suspect]
     Indication: PARKINSON'S DISEASE
     Dates: start: 20050301, end: 20050502
  10. REMINYL [Concomitant]
  11. VITAMIN B12 (VITAMIN B12) [Concomitant]
  12. MULTIPLE OTC SUPPLEMENTS (NOS) [Concomitant]

REACTIONS (7)
  - CYSTITIS [None]
  - DEHYDRATION [None]
  - HYDROCEPHALUS [None]
  - HYPERTENSION [None]
  - MIOSIS [None]
  - PUPILLARY REFLEX IMPAIRED [None]
  - PYREXIA [None]
